FAERS Safety Report 6589983-1 (Version None)
Quarter: 2010Q1

REPORT INFORMATION
  Report Type: 
  Country: None (occurrence: None)
  Receive Date: 20100219
  Receipt Date: 20100208
  Transmission Date: 20100710
  Serious: Yes (Other)
  Sender: FDA-Public Use
  Company Number: PHHY2010MT06712

PATIENT
  Age: 46 Year
  Sex: Female

DRUGS (3)
  1. DIOVAN [Suspect]
     Indication: HYPERTENSION
     Dosage: 80 MG DAILY
     Route: 048
  2. AMLODIPINE [Concomitant]
     Dosage: 5 MG
     Dates: start: 20080201
  3. BENDROFLUMETHIAZIDE [Concomitant]
     Dosage: 2.5 MG
     Dates: start: 20081201

REACTIONS (1)
  - BURNING SENSATION [None]
